FAERS Safety Report 6817604-9 (Version None)
Quarter: 2010Q3

REPORT INFORMATION
  Report Type: 
  Country: None (occurrence: None)
  Receive Date: 20100706
  Receipt Date: 20100628
  Transmission Date: 20110219
  Serious: Yes (Other)
  Sender: FDA-Public Use
  Company Number: GB-MPIJNJ-2010-02638

PATIENT

DRUGS (4)
  1. VELCADE [Suspect]
     Indication: MULTIPLE MYELOMA
     Dosage: 2.8 MG, UNK
     Route: 065
  2. VELCADE [Suspect]
     Dosage: 2.0 MG, UNK
     Route: 065
  3. VELCADE [Suspect]
     Dosage: 1.4 MG, UNK
     Route: 065
  4. DEXAMETHASONE [Concomitant]

REACTIONS (3)
  - ABDOMINAL DISTENSION [None]
  - FATIGUE [None]
  - NEUROPATHY PERIPHERAL [None]
